FAERS Safety Report 17202995 (Version 4)
Quarter: 2020Q1

REPORT INFORMATION
  Report Type: Spontaneous
  Country: US (occurrence: US)
  Receive Date: 20191226
  Receipt Date: 20200221
  Transmission Date: 20200409
  Serious: No
  Sender: FDA-Public Use
  Company Number: US-PFIZER INC-2019550384

PATIENT
  Age: 65 Year
  Sex: Female

DRUGS (6)
  1. IBRANCE [Suspect]
     Active Substance: PALBOCICLIB
     Dosage: 100 UNK, UNK
  2. LETROZOLE. [Suspect]
     Active Substance: LETROZOLE
     Dosage: UNK
     Dates: start: 20191204
  3. IBRANCE [Suspect]
     Active Substance: PALBOCICLIB
     Indication: BREAST CANCER FEMALE
     Dosage: 125 MG, UNK
     Dates: start: 20191204, end: 201912
  4. LETROZOLE. [Suspect]
     Active Substance: LETROZOLE
     Dosage: UNK (2.5)
  5. IBRANCE [Suspect]
     Active Substance: PALBOCICLIB
     Dosage: 120 MG, UNK
  6. IBRANCE [Suspect]
     Active Substance: PALBOCICLIB
     Dosage: 100 MG, UNK
     Dates: start: 201912, end: 20191224

REACTIONS (10)
  - Dizziness [Unknown]
  - Rash [Unknown]
  - Balance disorder [Unknown]
  - Intentional product misuse [Unknown]
  - Hyperaesthesia [Unknown]
  - Swelling [Unknown]
  - Weight decreased [Unknown]
  - Influenza [Unknown]
  - Tremor [Unknown]
  - Rib fracture [Unknown]

NARRATIVE: CASE EVENT DATE: 201912
